FAERS Safety Report 8083101-9 (Version None)
Quarter: 2012Q1

REPORT INFORMATION
  Report Type: 
  Country: None (occurrence: None)
  Receive Date: 20120127
  Receipt Date: 20110228
  Transmission Date: 20120608
  Serious: No
  Sender: FDA-Public Use
  Company Number: US-ABBOTT-11P-163-0708924-00

PATIENT
  Sex: Male
  Weight: 85.806 kg

DRUGS (1)
  1. HUMIRA [Suspect]
     Indication: HIDRADENITIS

REACTIONS (2)
  - OROPHARYNGEAL PAIN [None]
  - LOCALISED OEDEMA [None]
